FAERS Safety Report 5429242-3 (Version None)
Quarter: 2007Q3

REPORT INFORMATION
  Report Type: 
  Country: None (occurrence: None)
  Receive Date: 20070827
  Receipt Date: 20070827
  Transmission Date: 20080115
  Serious: Yes (Other)
  Sender: FDA-Public Use
  Company Number: None

PATIENT
  Age: 67 Year
  Sex: Female
  Weight: 79.3795 kg

DRUGS (2)
  1. LEXAPRO [Suspect]
     Indication: ANXIETY
     Dosage: 10MG ONCE DAILY PO
     Route: 048
     Dates: start: 20061115, end: 20070824
  2. LEXAPRO [Suspect]
     Indication: DEPRESSION
     Dosage: 10MG ONCE DAILY PO
     Route: 048
     Dates: start: 20061115, end: 20070824

REACTIONS (2)
  - GASTROINTESTINAL DISORDER [None]
  - GASTROOESOPHAGEAL REFLUX DISEASE [None]
